FAERS Safety Report 20848507 (Version 1)
Quarter: 2022Q2

REPORT INFORMATION
  Report Type: Spontaneous
  Country: US (occurrence: None)
  Receive Date: 20220518
  Receipt Date: 20220518
  Transmission Date: 20220721
  Serious: No
  Sender: FDA-Public Use
  Company Number: None

PATIENT
  Age: 73 Year
  Sex: Male

DRUGS (2)
  1. GAMMAGARD LIQUID [Suspect]
     Active Substance: HUMAN IMMUNOGLOBULIN G
     Indication: Hypogammaglobulinaemia
     Dosage: 25GM EVERY 4 WEEKS INTRAVENOUSLY?
     Route: 042
     Dates: start: 20220117
  2. GAMMAGARD LIQUID [Suspect]
     Active Substance: HUMAN IMMUNOGLOBULIN G
     Indication: Hypogammaglobulinaemia
     Dosage: 25GM EVERY 4 WEEKS INTRAVENOUSLY?
     Route: 042
     Dates: start: 20220117

REACTIONS (3)
  - Infusion related reaction [None]
  - Body temperature increased [None]
  - Cough [None]

NARRATIVE: CASE EVENT DATE: 20220516
